FAERS Safety Report 15746104 (Version 1)
Quarter: 2018Q4

REPORT INFORMATION
  Report Type: Spontaneous
  Country: JP (occurrence: JP)
  Receive Date: 20181220
  Receipt Date: 20181220
  Transmission Date: 20190205
  Serious: Yes (Other)
  Sender: FDA-Public Use
  Company Number: JP-LANNETT COMPANY, INC.-JP-2018LAN004622

PATIENT

DRUGS (19)
  1. ESOMEPRAZOLE MAGNESIUM. [Suspect]
     Active Substance: ESOMEPRAZOLE MAGNESIUM
     Indication: LIMBIC ENCEPHALITIS
     Dosage: 20 MG, QD
  2. AMPICILLIN AND SULBACTAM [Suspect]
     Active Substance: AMPICILLIN SODIUM\SULBACTAM SODIUM
     Indication: LIMBIC ENCEPHALITIS
     Dosage: 3 G, QD
  3. METHYLPREDNISOLONE. [Suspect]
     Active Substance: METHYLPREDNISOLONE
     Indication: LIMBIC ENCEPHALITIS
     Dosage: 1 G, QD
  4. BROTIZOLAM [Suspect]
     Active Substance: BROTIZOLAM
     Indication: LIMBIC ENCEPHALITIS
     Dosage: 0.25 MG, QD
  5. SUVOREXANT. [Suspect]
     Active Substance: SUVOREXANT
     Indication: LIMBIC ENCEPHALITIS
     Dosage: 20 MG, QD
  6. LACOSAMIDE. [Suspect]
     Active Substance: LACOSAMIDE
     Indication: FOCAL DYSCOGNITIVE SEIZURES
     Dosage: 100 MG, QD
  7. HALOPERIDOL LACTATE. [Suspect]
     Active Substance: HALOPERIDOL LACTATE
     Indication: LIMBIC ENCEPHALITIS
     Dosage: 5-10 MG, QD
     Route: 065
  8. QUETIAPINE. [Suspect]
     Active Substance: QUETIAPINE
     Indication: LIMBIC ENCEPHALITIS
     Dosage: 12.5-25 MG, QD
  9. ACYCLOVIR                          /00587301/ [Suspect]
     Active Substance: ACYCLOVIR
     Indication: LIMBIC ENCEPHALITIS
     Dosage: 10 MG/KG, QD
  10. FENTANYL. [Suspect]
     Active Substance: FENTANYL
     Indication: LIMBIC ENCEPHALITIS
     Dosage: 0.07 MG/H
  11. PROPOFOL. [Suspect]
     Active Substance: PROPOFOL
     Indication: LIMBIC ENCEPHALITIS
     Dosage: 100-150 MG/H
  12. DEXMEDETOMIDINE. [Suspect]
     Active Substance: DEXMEDETOMIDINE
     Indication: LIMBIC ENCEPHALITIS
     Dosage: 0.5-0.7 ?G/KG/H
  13. METHYLPREDNISOLONE. [Suspect]
     Active Substance: METHYLPREDNISOLONE
     Dosage: 1 G, EVERY WEEK, FOR 4 TIMES
  14. RAMELTEON [Suspect]
     Active Substance: RAMELTEON
     Indication: LIMBIC ENCEPHALITIS
     Dosage: 8 MG, QD
  15. LOXOPROFEN [Suspect]
     Active Substance: LOXOPROFEN
     Indication: LIMBIC ENCEPHALITIS
     Dosage: 60 MG, QD
  16. EDOXABAN [Suspect]
     Active Substance: EDOXABAN TOSYLATE
     Indication: LIMBIC ENCEPHALITIS
     Dosage: 30 MG, QD
  17. LEVETIRACETAM. [Suspect]
     Active Substance: LEVETIRACETAM
     Indication: FOCAL DYSCOGNITIVE SEIZURES
     Dosage: 3000 MG, QD
  18. MOSAPRIDE [Suspect]
     Active Substance: MOSAPRIDE
     Indication: LIMBIC ENCEPHALITIS
     Dosage: 15 MG, QD
  19. IMMUNOGLOBULIN                     /07494701/ [Suspect]
     Active Substance: IMMUNE GLOBULIN NOS
     Indication: LIMBIC ENCEPHALITIS
     Dosage: 0.4 G/KG/DAY FOR 5 DAYS
     Route: 042

REACTIONS (1)
  - Toxic epidermal necrolysis [Recovering/Resolving]
